FAERS Safety Report 16883071 (Version 2)
Quarter: 2020Q2

REPORT INFORMATION
  Report Type: Report from Study
  Country: TW (occurrence: TW)
  Receive Date: 20191004
  Receipt Date: 20200625
  Transmission Date: 20200713
  Serious: Yes (Hospitalization, Other)
  Sender: FDA-Public Use
  Company Number: TW-SA-2019SA269021

PATIENT

DRUGS (1)
  1. AGALSIDASE BETA [Suspect]
     Active Substance: AGALSIDASE BETA
     Indication: FABRY^S DISEASE
     Dosage: 70 MG (2 VIALS); QOW
     Route: 041
     Dates: start: 20190912, end: 20200618

REACTIONS (5)
  - Nasopharyngitis [Recovering/Resolving]
  - Dialysis [Recovering/Resolving]
  - Generalised oedema [Recovering/Resolving]
  - Glycosylated haemoglobin increased [Unknown]
  - Pulmonary oedema [Recovering/Resolving]

NARRATIVE: CASE EVENT DATE: 201909
